APPROVED DRUG PRODUCT: ALSUMA
Active Ingredient: SUMATRIPTAN SUCCINATE
Strength: EQ 6MG BASE/0.5ML (EQ 12MG BASE/ML)
Dosage Form/Route: INJECTABLE;SUBCUTANEOUS
Application: N022377 | Product #001
Applicant: MERIDIAN MEDICAL TECHNOLOGIES INC SUB KING PHARMACEUTICALS INC
Approved: Jun 29, 2010 | RLD: No | RS: No | Type: DISCN

PATENTS:
Patent 7811254 | Expires: Aug 26, 2027